FAERS Safety Report 4775376-6 (Version None)
Quarter: 2005Q3

REPORT INFORMATION
  Report Type: 
  Country: None (occurrence: None)
  Receive Date: 20050914
  Receipt Date: 20050311
  Transmission Date: 20060218
  Serious: Yes (Death, Hospitalization)
  Sender: FDA-Public Use
  Company Number: 163-20785-05030316

PATIENT
  Age: 80 Year
  Sex: Male

DRUGS (9)
  1. THALOMID [Suspect]
     Indication: MULTIPLE MYELOMA
     Dosage: 50 MG, DAILY, ORAL; 100 MG, DAILY, ORAL;  150 MG, DAILY, ORAL
     Route: 048
     Dates: start: 20030701, end: 20040601
  2. THALOMID [Suspect]
     Indication: MULTIPLE MYELOMA
     Dosage: 50 MG, DAILY, ORAL; 100 MG, DAILY, ORAL;  150 MG, DAILY, ORAL
     Route: 048
     Dates: start: 20040101, end: 20040901
  3. THALOMID [Suspect]
     Indication: MULTIPLE MYELOMA
     Dosage: 50 MG, DAILY, ORAL; 100 MG, DAILY, ORAL;  150 MG, DAILY, ORAL
     Route: 048
     Dates: end: 20040901
  4. NIFEDIPINE [Concomitant]
  5. SODIUM BICARBONATE IN PLASTIC CONTAINER [Concomitant]
  6. LASIX [Concomitant]
  7. FENTANYL CITRATE [Concomitant]
  8. PILOCARPINE (PILOCARPINE) [Concomitant]
  9. ALPHAGAN [Concomitant]

REACTIONS (3)
  - DEATH [None]
  - DISEASE PROGRESSION [None]
  - PYREXIA [None]
